FAERS Safety Report 18767805 (Version 1)
Quarter: 2021Q1

REPORT INFORMATION
  Report Type: Spontaneous
  Country: ES (occurrence: ES)
  Receive Date: 20210121
  Receipt Date: 20210121
  Transmission Date: 20210419
  Serious: Yes (Other)
  Sender: FDA-Public Use
  Company Number: ES-ALK-ABELLO A/S-2020AA004518

PATIENT

DRUGS (1)
  1. PHARMALGEN 801 [Suspect]
     Active Substance: APIS MELLIFERA
     Indication: IMMUNE TOLERANCE INDUCTION
     Dosage: UNK
     Dates: start: 20201113

REACTIONS (10)
  - Erythema [Recovered/Resolved]
  - Erythema [Recovered/Resolved]
  - Abdominal pain [Recovered/Resolved]
  - Abdominal pain [Recovered/Resolved]
  - Erythema [Recovered/Resolved]
  - Bradycardia [Recovered/Resolved]
  - Abdominal pain upper [Recovered/Resolved]
  - Hyperhidrosis [Recovered/Resolved]
  - Abdominal pain [Recovered/Resolved]
  - Erythema [Recovered/Resolved]

NARRATIVE: CASE EVENT DATE: 20201113
